FAERS Safety Report 25665604 (Version 1)
Quarter: 2025Q3

REPORT INFORMATION
  Report Type: Report from Study
  Country: US (occurrence: US)
  Receive Date: 20250811
  Receipt Date: 20250811
  Transmission Date: 20251021
  Serious: Yes (Hospitalization)
  Sender: EISAI
  Company Number: US-Eisai-EC-2025-191229

PATIENT
  Age: 65 Year
  Sex: Female
  Weight: 67.1 kg

DRUGS (6)
  1. LENVIMA [Suspect]
     Active Substance: LENVATINIB
     Indication: Renal cell carcinoma
     Dates: start: 20250610, end: 202506
  2. LENVIMA [Suspect]
     Active Substance: LENVATINIB
     Dates: start: 2025
  3. EVEROLIMUS [Concomitant]
     Active Substance: EVEROLIMUS
  4. IBUPROFEN [Concomitant]
     Active Substance: IBUPROFEN
  5. LIDOCAINE PATCH [Concomitant]
     Active Substance: LIDOCAINE
  6. LUNESTA [Concomitant]
     Active Substance: ESZOPICLONE

REACTIONS (6)
  - Pyrexia [Unknown]
  - Fatigue [Not Recovered/Not Resolved]
  - Headache [Not Recovered/Not Resolved]
  - Hyperhidrosis [Not Recovered/Not Resolved]
  - Blood pressure increased [Not Recovered/Not Resolved]
  - Superficial vein prominence [Not Recovered/Not Resolved]

NARRATIVE: CASE EVENT DATE: 20250601
